FAERS Safety Report 6601568-7 (Version None)
Quarter: 2010Q1

REPORT INFORMATION
  Report Type: 
  Country: None (occurrence: None)
  Receive Date: 20100225
  Receipt Date: 20091207
  Transmission Date: 20100710
  Serious: No
  Sender: FDA-Public Use
  Company Number: US-KINGPHARMUSA00001-K200901539

PATIENT
  Age: 54 Year
  Sex: Female
  Weight: 49.887 kg

DRUGS (5)
  1. FLECTOR [Suspect]
     Indication: BACK PAIN
     Dosage: 1 PATCH, EVERY 12 HOURS
     Route: 061
     Dates: start: 20091202, end: 20091201
  2. FLECTOR [Suspect]
     Dosage: 1 PATCH, DAILY
     Route: 061
     Dates: start: 20091201
  3. LIDODERM [Concomitant]
     Indication: BACK PAIN
     Dosage: UNK
     Dates: start: 20091101
  4. SOMA [Concomitant]
     Indication: BACK PAIN
     Dosage: UNK
     Dates: start: 20091101
  5. LYRICA [Concomitant]
     Indication: BACK PAIN
     Dosage: UNK
     Dates: start: 20091101

REACTIONS (5)
  - ABDOMINAL DISCOMFORT [None]
  - ABDOMINAL DISTENSION [None]
  - FLATULENCE [None]
  - GASTRITIS [None]
  - INFLUENZA LIKE ILLNESS [None]
